FAERS Safety Report 8862633 (Version 6)
Quarter: 2013Q2

REPORT INFORMATION
  Report Type: Spontaneous
  Country: US (occurrence: US)
  Receive Date: 20121026
  Receipt Date: 20130508
  Transmission Date: 20140414
  Serious: No
  Sender: FDA-Public Use
  Company Number: US-009507513-1210USA003466

PATIENT
  Sex: Female
  Weight: 55.78 kg

DRUGS (4)
  1. IMPLANON [Suspect]
     Indication: CONTRACEPTION
     Dosage: 1 DF, UNK
     Dates: start: 200910
  2. ALLEGRA-D [Concomitant]
  3. ALBUTEROL [Concomitant]
  4. ADVAIR [Concomitant]

REACTIONS (3)
  - Incorrect drug administration duration [Unknown]
  - Medical device complication [Unknown]
  - No adverse event [Unknown]
